FAERS Safety Report 10228867 (Version 1)
Quarter: 2014Q2

REPORT INFORMATION
  Report Type: Spontaneous
  Country: ES (occurrence: ES)
  Receive Date: 20140610
  Receipt Date: 20140610
  Transmission Date: 20141212
  Serious: Yes (Other)
  Sender: FDA-Public Use
  Company Number: PHHY2014ES069338

PATIENT
  Sex: 0

DRUGS (1)
  1. PARACETAMOL [Suspect]

REACTIONS (6)
  - Type I hypersensitivity [Unknown]
  - Anaphylactic reaction [Unknown]
  - Abdominal pain [Unknown]
  - Vomiting [Unknown]
  - Pruritus [Unknown]
  - Erythema [Unknown]
